FAERS Safety Report 17950925 (Version 3)
Quarter: 2020Q4

REPORT INFORMATION
  Report Type: Report from Study
  Country: CA (occurrence: CA)
  Receive Date: 20200626
  Receipt Date: 20201009
  Transmission Date: 20210113
  Serious: Yes (Other)
  Sender: FDA-Public Use
  Company Number: CA-GLAXOSMITHKLINE-CA2020AMR103628

PATIENT
  Sex: Female

DRUGS (1)
  1. MEPOLIZUMAB [Suspect]
     Active Substance: MEPOLIZUMAB
     Indication: ASTHMA
     Dosage: 100 MG, Z, MONTHLY
     Route: 042
     Dates: start: 20171024

REACTIONS (6)
  - Sputum discoloured [Not Recovered/Not Resolved]
  - Dyspnoea [Unknown]
  - Lung disorder [Unknown]
  - Therapeutic response shortened [Unknown]
  - Therapeutic product effect incomplete [Unknown]
  - Pneumonia [Unknown]
